FAERS Safety Report 7250611-3 (Version None)
Quarter: 2011Q1

REPORT INFORMATION
  Report Type: 
  Country: None (occurrence: None)
  Receive Date: 20110128
  Receipt Date: 20110119
  Transmission Date: 20110831
  Serious: Yes (Other)
  Sender: FDA-Public Use
  Company Number: CA-JNJFOC-20110102542

PATIENT
  Sex: Female
  Weight: 66 kg

DRUGS (23)
  1. REMICADE [Suspect]
     Route: 042
  2. FLURAZEPAM [Concomitant]
  3. ACETAMINOPHEN [Concomitant]
     Route: 048
  4. DILAUDID [Concomitant]
     Indication: PAIN
     Dosage: PRN
  5. SOLU-CORTEF [Concomitant]
     Indication: PREMEDICATION
     Route: 042
  6. REMICADE [Suspect]
     Indication: CROHN'S DISEASE
     Route: 042
  7. DICYCLOMINE [Concomitant]
     Dosage: PRN
  8. QUETIAPINE [Concomitant]
  9. PURINETHOL [Concomitant]
     Dosage: IN THE AM
  10. NICODERM [Concomitant]
  11. LACTULOSE [Concomitant]
  12. FLONASE [Concomitant]
     Dosage: PRN  2 SPRAY EACH NOSTRIL AT NIGHT
     Route: 055
  13. DILAUDID [Concomitant]
     Dosage: PRN
  14. METHOTREXATE [Concomitant]
     Route: 058
  15. PENTASA [Concomitant]
  16. FLONASE [Concomitant]
     Dosage: PRN
     Route: 055
  17. REMICADE [Suspect]
     Route: 042
  18. NEXIUM [Concomitant]
     Dosage: IN THE AM
  19. PROCHLORPERAZINE [Concomitant]
     Dosage: PRN
  20. PREDNISONE [Concomitant]
  21. ACETAMINOPHEN [Concomitant]
     Indication: PREMEDICATION
     Dosage: PRN
     Route: 048
  22. CORTISON [Concomitant]
     Indication: PREMEDICATION
  23. BENADRYL [Concomitant]
     Indication: PREMEDICATION
     Route: 048

REACTIONS (6)
  - INFUSION RELATED REACTION [None]
  - DYSPNOEA [None]
  - NAUSEA [None]
  - RASH [None]
  - ERYTHEMA [None]
  - OXYGEN SATURATION DECREASED [None]
